FAERS Safety Report 12492326 (Version 1)
Quarter: 2016Q2

REPORT INFORMATION
  Report Type: Report from Study
  Country: CA (occurrence: CA)
  Receive Date: 20160623
  Receipt Date: 20160623
  Transmission Date: 20160815
  Serious: Yes (Other)
  Sender: FDA-Public Use
  Company Number: CA-EMD SERONO-8090025

PATIENT
  Age: 63 Year
  Sex: Female

DRUGS (1)
  1. REBIF [Suspect]
     Active Substance: INTERFERON BETA-1A
     Indication: RELAPSING-REMITTING MULTIPLE SCLEROSIS
     Route: 058
     Dates: start: 20040619

REACTIONS (6)
  - Cerebrovascular accident [Unknown]
  - Hemiparesis [Unknown]
  - Inappropriate schedule of drug administration [Unknown]
  - General physical health deterioration [Unknown]
  - Weight increased [Unknown]
  - Tremor [Unknown]

NARRATIVE: CASE EVENT DATE: 201512
